FAERS Safety Report 9949001 (Version 1)
Quarter: 2014Q1

REPORT INFORMATION
  Report Type: Spontaneous
  Country: US (occurrence: US)
  Receive Date: 20140304
  Receipt Date: 20140304
  Transmission Date: 20141002
  Serious: No
  Sender: FDA-Public Use
  Company Number: US-B.I. PHARMACEUTICALS,INC./RIDGEFIELD-2014-BI-08753BP

PATIENT
  Age: 77 Year
  Sex: Male

DRUGS (4)
  1. AGGRENOX [Suspect]
     Indication: PROPHYLAXIS
     Dosage: STRENGTH: 25 MG / 200 MG; DAILY DOSE: 50 MG / 400 MG
     Route: 048
     Dates: start: 20140210
  2. SALINE NASAL SPRAY [Concomitant]
     Indication: NASAL CONGESTION
     Dosage: 2 PUF
     Route: 055
  3. ASPIRIN [Concomitant]
     Indication: TRANSIENT ISCHAEMIC ATTACK
     Dosage: 81 MG
     Route: 048
  4. ASTHMANEX [Concomitant]
     Indication: NASAL CONGESTION
     Dosage: 2 PUF
     Route: 055

REACTIONS (3)
  - Dizziness [Not Recovered/Not Resolved]
  - Vertigo [Not Recovered/Not Resolved]
  - Fall [Not Recovered/Not Resolved]
